FAERS Safety Report 8980771 (Version 1)
Quarter: 2012Q4

REPORT INFORMATION
  Report Type: 
  Country: US (occurrence: US)
  Receive Date: 20121221
  Receipt Date: 20121221
  Transmission Date: 20130627
  Serious: Yes (Other)
  Sender: FDA-Public Use
  Company Number: US-PFIZER INC-2012322624

PATIENT
  Age: 34 Year
  Sex: Male
  Weight: 68.03 kg

DRUGS (6)
  1. REVATIO [Suspect]
     Indication: TETRALOGY OF FALLOT
     Dosage: 20 mg, 3x/day
     Route: 048
     Dates: start: 2012
  2. REVATIO [Suspect]
     Dosage: 40 mg, 3x/day
     Route: 048
     Dates: start: 20121101
  3. LISINOPRIL [Concomitant]
     Indication: HEART DISORDER
     Dosage: 5 mg, daily
  4. DIGOXIN [Concomitant]
     Indication: HEART DISORDER
     Dosage: 0.25 mg, daily
  5. FUROSEMIDE [Concomitant]
     Indication: HEART DISORDER
     Dosage: 20 mg, daily
  6. ATENOLOL [Concomitant]
     Indication: HEART DISORDER
     Dosage: 50 mg, daily

REACTIONS (7)
  - Urinary tract infection [Unknown]
  - Hallucination, visual [Unknown]
  - Depression [Unknown]
  - Abnormal behaviour [Unknown]
  - Inappropriate affect [Unknown]
  - Muscle twitching [Unknown]
  - Off label use [Unknown]
